FAERS Safety Report 20809633 (Version 1)
Quarter: 2022Q2

REPORT INFORMATION
  Report Type: Spontaneous
  Country: CN (occurrence: CN)
  Receive Date: 20220510
  Receipt Date: 20220510
  Transmission Date: 20220721
  Serious: Yes (Hospitalization)
  Sender: FDA-Public Use
  Company Number: CN-PFIZER INC-202200644480

PATIENT
  Age: 29 Year
  Sex: Female
  Weight: 43.5 kg

DRUGS (10)
  1. EPIRUBICIN HYDROCHLORIDE [Suspect]
     Active Substance: EPIRUBICIN HYDROCHLORIDE
     Indication: Chemotherapy
     Dosage: 124 MG, EVERY 3 WEEKS
     Route: 041
     Dates: start: 20220418, end: 20220418
  2. CYCLOPHOSPHAMIDE [Suspect]
     Active Substance: CYCLOPHOSPHAMIDE
     Indication: Chemotherapy
     Dosage: 828 MG, EVERY 3 WEEKS
     Route: 041
     Dates: start: 20220418, end: 20220418
  3. DEXAMETHASONE SODIUM PHOSPHATE [Concomitant]
     Active Substance: DEXAMETHASONE SODIUM PHOSPHATE
     Indication: Hypersensitivity
     Dosage: 5 MG, EVERY 3 WEEKS
     Route: 041
     Dates: start: 20220418, end: 20220418
  4. DEXAMETHASONE SODIUM PHOSPHATE [Concomitant]
     Active Substance: DEXAMETHASONE SODIUM PHOSPHATE
     Indication: Vomiting
  5. SODIUM CHLORIDE [Concomitant]
     Active Substance: SODIUM CHLORIDE
     Indication: Vehicle solution use
     Dosage: 100 ML, EVERY 3 WEEKS
     Route: 041
     Dates: start: 20220418, end: 20220418
  6. SODIUM CHLORIDE [Concomitant]
     Active Substance: SODIUM CHLORIDE
     Dosage: 500 ML, EVERY 3 WEEKS
     Route: 041
     Dates: start: 20220418, end: 20220418
  7. SODIUM CHLORIDE [Concomitant]
     Active Substance: SODIUM CHLORIDE
     Dosage: 20 ML
  8. SODIUM CHLORIDE [Concomitant]
     Active Substance: SODIUM CHLORIDE
     Dosage: 100 ML
  9. PALONOSETRON HYDROCHLORIDE [Concomitant]
     Active Substance: PALONOSETRON HYDROCHLORIDE
     Indication: Prophylaxis of nausea and vomiting
     Dosage: 0.25 MG, EVERY 3 WEEKS
     Route: 042
     Dates: start: 20220418, end: 20220418
  10. DIPHENHYDRAMINE HYDROCHLORIDE [Concomitant]
     Active Substance: DIPHENHYDRAMINE HYDROCHLORIDE
     Indication: Vehicle solution use
     Dosage: 20 MG, EVERY 3 WEEKS
     Route: 030
     Dates: start: 20220418, end: 20220418

REACTIONS (4)
  - Myelosuppression [Recovering/Resolving]
  - Dizziness [Unknown]
  - Back pain [Unknown]
  - Asthenia [Unknown]

NARRATIVE: CASE EVENT DATE: 20220426
